FAERS Safety Report 11248221 (Version 6)
Quarter: 2016Q1

REPORT INFORMATION
  Report Type: Report from Study
  Country: JP (occurrence: JP)
  Receive Date: 20150708
  Receipt Date: 20160330
  Transmission Date: 20160525
  Serious: Yes (Hospitalization)
  Sender: FDA-Public Use
  Company Number: JP-EISAI MEDICAL RESEARCH-EC-2015-008242

PATIENT
  Age: 78 Year
  Sex: Female
  Weight: 38 kg

DRUGS (13)
  1. LENVIMA [Suspect]
     Active Substance: LENVATINIB
     Route: 048
     Dates: start: 20150928
  2. REBAMIPIDE [Concomitant]
     Active Substance: REBAMIPIDE
  3. SODIUM PICOSULFATE HYDRATE [Concomitant]
  4. LENVIMA [Suspect]
     Active Substance: LENVATINIB
     Dosage: UNKNOWN
     Route: 048
     Dates: end: 20160205
  5. MS CONTIN [Concomitant]
     Active Substance: MORPHINE SULFATE
  6. THYRADIN [Concomitant]
     Active Substance: LEVOTHYROXINE
  7. BROTIZOLAM [Concomitant]
     Active Substance: BROTIZOLAM
  8. MAGLAX [Concomitant]
     Active Substance: MAGNESIUM OXIDE
  9. LENVIMA [Suspect]
     Active Substance: LENVATINIB
     Indication: ANAPLASTIC THYROID CANCER
     Route: 048
     Dates: start: 20150601, end: 20150629
  10. CALCIUM LACTATE AND PREPARATIONS [Concomitant]
  11. LENVIMA [Suspect]
     Active Substance: LENVATINIB
     Route: 048
     Dates: start: 20150630, end: 20150701
  12. BESOFTEN [Concomitant]
     Active Substance: SODIUM ALGINATE
  13. LEVOTHYROXINE SODIUM HYDRATE [Concomitant]

REACTIONS (3)
  - Amyloidosis [Recovering/Resolving]
  - Pancytopenia [Recovered/Resolved]
  - Vomiting [Recovered/Resolved]

NARRATIVE: CASE EVENT DATE: 20150629
